FAERS Safety Report 10427507 (Version 1)
Quarter: 2014Q3

REPORT INFORMATION
  Report Type: Spontaneous
  Country: PT (occurrence: PT)
  Receive Date: 20140903
  Receipt Date: 20140903
  Transmission Date: 20150326
  Serious: Yes (Other)
  Sender: FDA-Public Use
  Company Number: PT-BAXTER-2014BAX051094

PATIENT
  Age: 30 Year
  Sex: Female

DRUGS (1)
  1. TISSEEL LYO [Suspect]
     Active Substance: FIBRINOGEN HUMAN\THROMBIN HUMAN
     Indication: PROCEDURAL COMPLICATION
     Route: 065

REACTIONS (11)
  - Photophobia [None]
  - Nausea [None]
  - Drug ineffective [Recovered/Resolved]
  - Aphasia [None]
  - Papilloedema [None]
  - Retinal haemorrhage [None]
  - Headache [None]
  - Dizziness [None]
  - Brain oedema [None]
  - Cerebrospinal fluid leakage [None]
  - Intracranial venous sinus thrombosis [None]
